FAERS Safety Report 6044027-5 (Version None)
Quarter: 2009Q1

REPORT INFORMATION
  Report Type: 
  Country: None (occurrence: None)
  Receive Date: 20090120
  Receipt Date: 20090108
  Transmission Date: 20090719
  Serious: Yes (Other)
  Sender: FDA-Public Use
  Company Number: US-AVENTIS-200910350GDDC

PATIENT
  Age: 46 Year
  Sex: Male
  Weight: 104.2 kg

DRUGS (6)
  1. TAXOTERE [Suspect]
     Route: 042
     Dates: start: 20080514, end: 20080827
  2. BEVACIZUMAB [Suspect]
     Route: 042
     Dates: start: 20080514, end: 20080806
  3. AMBIEN [Concomitant]
     Dates: start: 20080716
  4. FISH OIL [Concomitant]
     Dates: start: 20080507
  5. ASCORBIC ACID [Concomitant]
     Dates: start: 20080507
  6. ZOLOFT [Concomitant]
     Dates: start: 20080806

REACTIONS (1)
  - RETINAL VASCULAR OCCLUSION [None]
